FAERS Safety Report 9860552 (Version 2)
Quarter: 2014Q2

REPORT INFORMATION
  Report Type: Spontaneous
  Country: US (occurrence: US)
  Receive Date: 20140202
  Receipt Date: 20140429
  Transmission Date: 20141212
  Serious: Yes (Other)
  Sender: FDA-Public Use
  Company Number: US-TEVA-459874USA

PATIENT
  Age: 34 Year
  Sex: Female
  Weight: 65.83 kg

DRUGS (2)
  1. PARAGARD 380A [Suspect]
     Indication: CONTRACEPTION
     Route: 015
     Dates: start: 2013
  2. VITAMINS NOS [Concomitant]
     Indication: SUPPLEMENTATION THERAPY

REACTIONS (3)
  - Device dislocation [Recovered/Resolved]
  - Abdominal pain lower [Not Recovered/Not Resolved]
  - Menstruation irregular [Not Recovered/Not Resolved]
